FAERS Safety Report 9483045 (Version 1)
Quarter: 2013Q3

REPORT INFORMATION
  Report Type: Spontaneous
  Country: US (occurrence: US)
  Receive Date: 20130828
  Receipt Date: 20130828
  Transmission Date: 20140515
  Serious: Yes (Hospitalization, Other)
  Sender: FDA-Public Use
  Company Number: US-AMGEN-US080410

PATIENT
  Age: 43 Year
  Sex: Female

DRUGS (2)
  1. ENBREL [Suspect]
     Indication: RHEUMATOID ARTHRITIS
     Dosage: 25 MG, 2 TIMES/WK
     Route: 058
     Dates: start: 20030930
  2. METHOTREXATE [Concomitant]

REACTIONS (7)
  - Cerebrovascular accident [Unknown]
  - Neuropathy peripheral [Unknown]
  - Osteomyelitis [None]
  - Pyrexia [Unknown]
  - Tooth malformation [Unknown]
  - Fatigue [Unknown]
  - Leukopenia [Unknown]
